FAERS Safety Report 15023198 (Version 1)
Quarter: 2018Q2

REPORT INFORMATION
  Report Type: Spontaneous
  Country: GB (occurrence: GB)
  Receive Date: 20180618
  Receipt Date: 20180618
  Transmission Date: 20180711
  Serious: Yes (Hospitalization, Other)
  Sender: FDA-Public Use
  Company Number: GB-PFIZER INC-2018238428

PATIENT

DRUGS (7)
  1. TEMOZOLOMIDE. [Suspect]
     Active Substance: TEMOZOLOMIDE
     Dosage: UNK
     Route: 065
     Dates: start: 201502
  2. CAPECITABINE. [Suspect]
     Active Substance: CAPECITABINE
     Dosage: UNK
     Route: 065
     Dates: start: 201508
  3. PAMIDRONATE DISODIUM. [Suspect]
     Active Substance: PAMIDRONATE DISODIUM
     Indication: BONE LESION
     Dosage: UNK
     Route: 065
     Dates: start: 201711
  4. ETOPOSIDE. [Suspect]
     Active Substance: ETOPOSIDE
     Dosage: UNK
     Route: 065
  5. CARBOPLATIN. [Suspect]
     Active Substance: CARBOPLATIN
     Dosage: UNK
     Route: 065
  6. EVEROLIMUS. [Suspect]
     Active Substance: EVEROLIMUS
     Dosage: UNK
     Route: 065
     Dates: start: 201211
  7. TEMOZOLOMIDE. [Suspect]
     Active Substance: TEMOZOLOMIDE
     Dosage: UNK
     Route: 065
     Dates: start: 201801

REACTIONS (26)
  - Pain [Unknown]
  - Pulmonary hilum mass [Unknown]
  - Urticaria [Unknown]
  - Pruritus generalised [Unknown]
  - Thyroid disorder [Unknown]
  - Chest pain [Unknown]
  - Ovarian cancer [Unknown]
  - Bone pain [Recovering/Resolving]
  - Lower respiratory tract infection [Unknown]
  - Dyspnoea [Recovering/Resolving]
  - Metastases to spine [Unknown]
  - Mobility decreased [Recovering/Resolving]
  - Pulmonary mass [Unknown]
  - 5-hydroxyindolacetic acid increased [Unknown]
  - Pelvic mass [Unknown]
  - Bronchial carcinoma [Unknown]
  - Hyperplasia [Unknown]
  - Metastases to liver [Unknown]
  - Back pain [Unknown]
  - Metastases to bone [Unknown]
  - Blood gastrin increased [Unknown]
  - Spinal pain [Unknown]
  - Bone loss [Unknown]
  - Neuroendocrine tumour [Unknown]
  - Borderline ovarian tumour [Unknown]
  - Cough [Unknown]

NARRATIVE: CASE EVENT DATE: 201407
